FAERS Safety Report 10234544 (Version 1)
Quarter: 2014Q2

REPORT INFORMATION
  Report Type: Report from Study
  Country: US (occurrence: US)
  Receive Date: 20140613
  Receipt Date: 20140613
  Transmission Date: 20141212
  Serious: Yes (Other)
  Sender: FDA-Public Use
  Company Number: US-ROCHE-1416735

PATIENT
  Sex: Male

DRUGS (1)
  1. AVASTIN [Suspect]
     Indication: COLORECTAL CANCER METASTATIC
     Route: 042
     Dates: start: 201401

REACTIONS (3)
  - Aphonia [Not Recovered/Not Resolved]
  - Thrombosis [Recovering/Resolving]
  - Cerebrovascular accident [Recovering/Resolving]
